FAERS Safety Report 5122805-4 (Version None)
Quarter: 2006Q4

REPORT INFORMATION
  Report Type: 
  Country: None (occurrence: None)
  Receive Date: 20061009
  Receipt Date: 20061002
  Transmission Date: 20070319
  Serious: Yes (Death, Hospitalization)
  Sender: FDA-Public Use
  Company Number: US-BRISTOL-MYERS SQUIBB COMPANY-13527726

PATIENT
  Age: 57 Year
  Sex: Male
  Weight: 169 kg

DRUGS (1)
  1. AVAPRO [Suspect]
     Indication: HYPERTENSION
     Dates: start: 20030101

REACTIONS (2)
  - CARDIAC FAILURE CONGESTIVE [None]
  - FALL [None]
